FAERS Safety Report 6457715-3 (Version None)
Quarter: 2009Q4

REPORT INFORMATION
  Report Type: 
  Country: None (occurrence: None)
  Receive Date: 20091125
  Receipt Date: 20091116
  Transmission Date: 20100525
  Serious: Yes (Life-Threatening)
  Sender: FDA-Public Use
  Company Number: JP-PFIZER INC-2009294381

PATIENT
  Age: 70 Year
  Sex: Male
  Weight: 55.6 kg

DRUGS (11)
  1. CELECOX [Suspect]
     Indication: RHEUMATOID ARTHRITIS
     Dosage: UNK
     Route: 048
     Dates: start: 20081019, end: 20081101
  2. CELECOX [Suspect]
     Indication: ANALGESIC THERAPY
  3. PROGRAF [Suspect]
     Indication: RHEUMATOID ARTHRITIS
     Dosage: 1 MG, UID/1X/DAY
     Route: 048
     Dates: start: 20090310, end: 20090511
  4. PROGRAF [Suspect]
     Dosage: 3 MG, UID/1X/DAY
     Route: 048
     Dates: start: 20090630, end: 20090924
  5. PROGRAF [Suspect]
     Dosage: 2 MG, UID/1X/DAY
     Route: 048
     Dates: start: 20090512, end: 20090629
  6. TAKEPRON [Suspect]
     Dosage: 15 MG, UID,1X/DAY
     Route: 048
     Dates: start: 20090310, end: 20090924
  7. PREDNISOLONE [Concomitant]
  8. VOLTAREN [Concomitant]
     Dosage: UNK
     Dates: end: 20090924
  9. CONIEL [Concomitant]
     Dosage: UNK
  10. PLAVIX [Concomitant]
     Dosage: UNK
     Dates: end: 20090924
  11. WARFARIN SODIUM [Concomitant]
     Dosage: UNK
     Dates: start: 20090924, end: 20090924

REACTIONS (2)
  - INTERSTITIAL LUNG DISEASE [None]
  - RASH [None]
